FAERS Safety Report 15209473 (Version 1)
Quarter: 2018Q3

REPORT INFORMATION
  Report Type: Spontaneous
  Country: US (occurrence: US)
  Receive Date: 20180727
  Receipt Date: 20180727
  Transmission Date: 20181010
  Serious: Yes (Other)
  Sender: FDA-Public Use
  Company Number: US-ASTRAZENECA-2018SE94167

PATIENT
  Sex: Female
  Weight: 46.9 kg

DRUGS (1)
  1. FASLODEX [Suspect]
     Active Substance: FULVESTRANT
     Indication: BREAST CANCER METASTATIC
     Dosage: 500.0MG UNKNOWN
     Route: 030
     Dates: start: 20140304, end: 20180627

REACTIONS (8)
  - Oxygen saturation decreased [Unknown]
  - Flushing [Unknown]
  - Palmar erythema [Unknown]
  - Chest discomfort [Unknown]
  - Tongue disorder [Unknown]
  - Paraesthesia [Unknown]
  - Urticaria [Unknown]
  - Cough [Unknown]
